FAERS Safety Report 19911785 (Version 1)
Quarter: 2021Q4

REPORT INFORMATION
  Report Type: Spontaneous
  Country: US (occurrence: US)
  Receive Date: 20211001
  Receipt Date: 20211001
  Transmission Date: 20220303
  Serious: Yes (Hospitalization)
  Sender: FDA-Public Use
  Company Number: None

PATIENT
  Age: 83 Year
  Sex: Female

DRUGS (2)
  1. VERZENIO [Suspect]
     Active Substance: ABEMACICLIB
     Indication: Breast cancer female
     Dosage: TAKE ONE TABLET (50 MG TOTAL) BY MOUTH 2 (TWO) TIMES A DAY
     Route: 048
     Dates: start: 20210308
  2. FOSCAVIR INJ 24MG/ML [Concomitant]

REACTIONS (3)
  - Joint swelling [None]
  - COVID-19 [None]
  - Thrombosis [None]

NARRATIVE: CASE EVENT DATE: 20210929
